FAERS Safety Report 7670040-8 (Version None)
Quarter: 2011Q3

REPORT INFORMATION
  Report Type: 
  Country: None (occurrence: None)
  Receive Date: 20110808
  Receipt Date: 20110531
  Transmission Date: 20111222
  Serious: No
  Sender: FDA-Public Use
  Company Number: US-BAYER-2011-050693

PATIENT
  Sex: Male

DRUGS (1)
  1. FINACEA [Suspect]
     Indication: ROSACEA
     Dosage: UNK
     Route: 061

REACTIONS (2)
  - NO ADVERSE EVENT [None]
  - SKIN DISCOLOURATION [None]
